FAERS Safety Report 4970277-2 (Version None)
Quarter: 2006Q2

REPORT INFORMATION
  Report Type: 
  Country: None (occurrence: None)
  Receive Date: 20060331
  Receipt Date: 20060207
  Transmission Date: 20061013
  Serious: Yes (Hospitalization)
  Sender: FDA-Public Use
  Company Number: 2006BH002704

PATIENT
  Age: 5 Year
  Sex: Female
  Weight: 25 kg

DRUGS (1)
  1. IVEEGAM [Suspect]
     Indication: PROPHYLAXIS
     Dosage: 5 GM; EVERY 4 WK; IV
     Route: 042
     Dates: start: 20051215, end: 20051215

REACTIONS (3)
  - ABDOMINAL PAIN [None]
  - CHILLS [None]
  - TREMOR [None]
